FAERS Safety Report 5308768-7 (Version None)
Quarter: 2007Q2

REPORT INFORMATION
  Report Type: 
  Country: None (occurrence: None)
  Receive Date: 20070426
  Receipt Date: 20070420
  Transmission Date: 20071010
  Serious: Yes (Other)
  Sender: FDA-Public Use
  Company Number: BEWYE509823APR07

PATIENT
  Sex: Male

DRUGS (1)
  1. RAPAMUNE [Suspect]

REACTIONS (1)
  - LUNG DISORDER [None]
